FAERS Safety Report 4529918-6 (Version None)
Quarter: 2004Q4

REPORT INFORMATION
  Report Type: 
  Country: None (occurrence: None)
  Receive Date: 20041214
  Receipt Date: 20041201
  Transmission Date: 20050328
  Serious: Yes (Hospitalization)
  Sender: FDA-Public Use
  Company Number: 2004101960

PATIENT
  Age: 41 Year
  Sex: Male

DRUGS (12)
  1. ZOLOFT [Suspect]
     Indication: ILL-DEFINED DISORDER
     Dosage: (100 MG)
     Dates: end: 20040520
  2. ACETAMINOPHEN [Suspect]
     Indication: ILL-DEFINED DISORDER
  3. ZOLPIDEM TARTRATE [Suspect]
     Indication: ILL-DEFINED DISORDER
     Dates: end: 20040520
  4. CYCLOBENZAPRINE HYDROCHLORIDE (CYCLOBENZAPRINE HYDROCHLORIDE0 [Suspect]
     Indication: ILL-DEFINED DISORDER
     Dates: start: 20040201, end: 20040520
  5. FISH OIL (FISH OIL) [Concomitant]
  6. MERCAPTOPURINE [Concomitant]
  7. MESALAZINE (SESALAZINE) [Concomitant]
  8. OMEPRAZOLE [Concomitant]
  9. NEFAZODONE HCL [Concomitant]
  10. FOLIC ACID [Concomitant]
  11. IBUPROFEN [Concomitant]
  12. HALOPERIDOL [Concomitant]

REACTIONS (12)
  - ATELECTASIS [None]
  - CHEST PAIN [None]
  - CHROMATURIA [None]
  - COAGULOPATHY [None]
  - HEPATIC FAILURE [None]
  - HEPATIC STEATOSIS [None]
  - INFLUENZA LIKE ILLNESS [None]
  - MULTIPLE DRUG OVERDOSE [None]
  - OESOPHAGEAL DISORDER [None]
  - PNEUMONIA ASPIRATION [None]
  - STAPHYLOCOCCAL INFECTION [None]
  - VOMITING [None]
